FAERS Safety Report 7750880 (Version 3)
Quarter: 2013Q1

REPORT INFORMATION
  Report Type: Spontaneous
  Country: US (occurrence: US)
  Receive Date: 20110106
  Receipt Date: 20130315
  Transmission Date: 20140127
  Serious: Yes (Other)
  Sender: FDA-Public Use
  Company Number: CHPA2010US19594

PATIENT
  Age: 81 Year
  Sex: Male
  Weight: 79.37 kg

DRUGS (4)
  1. VOLTAREN GEL [Suspect]
     Indication: HERPES ZOSTER
     Dosage: UNK, BID OR QID
     Route: 061
     Dates: start: 201006
  2. VOLTAREN GEL [Suspect]
     Indication: ULCER
  3. VOLTAREN GEL [Suspect]
     Indication: PAIN IN EXTREMITY
  4. INSULIN [Concomitant]

REACTIONS (6)
  - Hypotension [Recovered/Resolved]
  - Dizziness [Recovered/Resolved]
  - Feeling abnormal [Recovered/Resolved]
  - Off label use [Unknown]
  - Drug ineffective for unapproved indication [Unknown]
  - Drug administered at inappropriate site [Unknown]
